FAERS Safety Report 5156162-4 (Version None)
Quarter: 2006Q4

REPORT INFORMATION
  Report Type: 
  Country: None (occurrence: None)
  Receive Date: 20061122
  Receipt Date: 20060914
  Transmission Date: 20070319
  Serious: Yes (Hospitalization, Other)
  Sender: FDA-Public Use
  Company Number: CL-ELI_LILLY_AND_COMPANY-CL200609003236

PATIENT
  Age: 36 Year
  Sex: Female
  Weight: 70 kg

DRUGS (9)
  1. RENAPUR [Concomitant]
     Dosage: 2 UNK, DAILY (1/D)
  2. ADCAL-D3 [Concomitant]
     Dosage: 1 D/F, DAILY (1/D)
     Route: 048
  3. CYMBALTA [Suspect]
     Indication: MAJOR DEPRESSION
     Dosage: 30 MG, DAILY (1/D)
     Route: 048
     Dates: start: 20060515, end: 20060525
  4. SLOW-K [Concomitant]
     Dosage: 1 U, DAILY (1/D)
     Route: 048
  5. ESPIRONOLACTONA [Concomitant]
     Dosage: 25 MG, 2/D
     Route: 048
  6. MAGNESIUM ASCORBATE [Concomitant]
     Dosage: UNK UNK, 2/D
     Route: 048
  7. CARVEDILOL [Concomitant]
     Dosage: 25 MG, 2/D
     Route: 048
  8. OMEPRAZOLE [Concomitant]
     Dosage: 20 MG, DAILY (1/D)
     Route: 048
  9. TRAMADOL HCL [Concomitant]
     Dosage: 20 GTT, 2/D
     Route: 048

REACTIONS (8)
  - ASTHENIA [None]
  - BLOOD CREATINE PHOSPHOKINASE INCREASED [None]
  - CHEST PAIN [None]
  - MYALGIA [None]
  - MYOGLOBINURIA [None]
  - RHABDOMYOLYSIS [None]
  - TACHYCARDIA [None]
  - VENTRICULAR EXTRASYSTOLES [None]
